FAERS Safety Report 8912697 (Version 2)
Quarter: 2012Q4

REPORT INFORMATION
  Report Type: 
  Country: FR (occurrence: FR)
  Receive Date: 20121116
  Receipt Date: 20121120
  Transmission Date: 20130627
  Serious: Yes (Other)
  Sender: FDA-Public Use
  Company Number: FR-GILEAD-2012-0064677

PATIENT
  Sex: Male

DRUGS (2)
  1. TRUVADA [Suspect]
     Indication: HIV INFECTION CDC CATEGORY A3
     Dosage: 1 DF, QD
     Route: 048
     Dates: start: 20070402
  2. ISENTRESS [Suspect]
     Indication: HIV INFECTION CDC CATEGORY A3
     Dosage: 2 DF, QD
     Route: 048
     Dates: start: 20080911, end: 20120716

REACTIONS (1)
  - Weight increased [Not Recovered/Not Resolved]
